FAERS Safety Report 9147390 (Version 1)
Quarter: 2013Q1

REPORT INFORMATION
  Report Type: Spontaneous
  Country: JP (occurrence: JP)
  Receive Date: 20130307
  Receipt Date: 20130307
  Transmission Date: 20140127
  Serious: Yes (Other)
  Sender: FDA-Public Use
  Company Number: JP-GLAXOSMITHKLINE-B0869853A

PATIENT
  Age: 63 Year
  Sex: Female

DRUGS (1)
  1. RELENZA [Suspect]
     Indication: INFLUENZA
     Dosage: 10MG TWICE PER DAY
     Route: 055
     Dates: start: 20130213, end: 20130214

REACTIONS (3)
  - VIth nerve paralysis [Recovering/Resolving]
  - Visual impairment [Recovering/Resolving]
  - Diplopia [Unknown]
